FAERS Safety Report 7513183-1 (Version None)
Quarter: 2011Q2

REPORT INFORMATION
  Report Type: 
  Country: None (occurrence: None)
  Receive Date: 20110531
  Receipt Date: 20110525
  Transmission Date: 20111010
  Serious: Yes (Life-Threatening)
  Sender: FDA-Public Use
  Company Number: IT-MERCK-1105ITA00044

PATIENT
  Age: 82 Year
  Sex: Female

DRUGS (7)
  1. QUETIAPINE FUMARATE [Concomitant]
     Route: 048
  2. SODIUM NITROPRUSSIDE [Concomitant]
     Route: 065
  3. ACETAMINOPHEN AND OXYCODONE HYDROCHLORIDE [Concomitant]
     Route: 065
  4. VERAPAMIL HCL [Suspect]
     Indication: ARRHYTHMIA
     Route: 048
     Dates: start: 20010101, end: 20100219
  5. COZAAR [Suspect]
     Indication: HYPERTENSION
     Route: 048
     Dates: start: 20010101, end: 20100219
  6. RIVASTIGMINE [Concomitant]
     Route: 065
  7. FORMOTEROL FUMARATE [Concomitant]
     Route: 065

REACTIONS (3)
  - HYPERKALAEMIA [None]
  - HYPOTENSION [None]
  - CARDIAC ARREST [None]
